FAERS Safety Report 5670156-1 (Version None)
Quarter: 2008Q1

REPORT INFORMATION
  Report Type: 
  Country: None (occurrence: None)
  Receive Date: 20080312
  Receipt Date: 20080229
  Transmission Date: 20080703
  Serious: Yes (Hospitalization)
  Sender: FDA-Public Use
  Company Number: 2008AL001248

PATIENT
  Age: 84 Year
  Sex: Female

DRUGS (5)
  1. FEVERALL [Suspect]
     Indication: CHEST PAIN
     Dosage: 4 G; QD
  2. FEVERALL [Suspect]
     Indication: MUSCULOSKELETAL PAIN
     Dosage: 4 G; QD
  3. OLANZAPINE [Concomitant]
  4. METOPROLOL TARTRATE [Concomitant]
  5. ASPIRIN [Concomitant]

REACTIONS (5)
  - ACUTE HEPATIC FAILURE [None]
  - BLOOD CREATININE INCREASED [None]
  - ELECTROLYTE IMBALANCE [None]
  - INTERNATIONAL NORMALISED RATIO INCREASED [None]
  - METABOLIC ACIDOSIS [None]
